FAERS Safety Report 8114586-7 (Version None)
Quarter: 2012Q1

REPORT INFORMATION
  Report Type: 
  Country: None (occurrence: None)
  Receive Date: 20120206
  Receipt Date: 20120203
  Transmission Date: 20120608
  Serious: No
  Sender: FDA-Public Use
  Company Number: US-PFIZER INC-2012030608

PATIENT
  Sex: Female
  Weight: 93.424 kg

DRUGS (5)
  1. CHANTIX [Suspect]
     Dosage: 1 MG, 2X/DAY
     Route: 048
     Dates: end: 20120101
  2. DIAZEPAM [Concomitant]
     Indication: BIPOLAR DISORDER
     Dosage: UNK
  3. CHANTIX [Suspect]
     Indication: SMOKING CESSATION THERAPY
     Dosage: 0.5 MG, DAILY
     Route: 048
     Dates: start: 20120103
  4. ABILIFY [Concomitant]
     Indication: BIPOLAR DISORDER
     Dosage: UNK
  5. LITHIUM [Concomitant]
     Indication: BIPOLAR DISORDER
     Dosage: UNK

REACTIONS (3)
  - FEELING ABNORMAL [None]
  - MOOD ALTERED [None]
  - MOOD SWINGS [None]
